FAERS Safety Report 16465378 (Version 2)
Quarter: 2019Q3

REPORT INFORMATION
  Report Type: Spontaneous
  Country: JP (occurrence: JP)
  Receive Date: 20190621
  Receipt Date: 20190830
  Transmission Date: 20191004
  Serious: Yes (Death, Hospitalization)
  Sender: FDA-Public Use
  Company Number: JP-EISAI MEDICAL RESEARCH-EC-2019-058089

PATIENT
  Age: 70 Year
  Sex: Female

DRUGS (1)
  1. ERIBULIN [Suspect]
     Active Substance: ERIBULIN
     Indication: BREAST CANCER
     Dosage: DOSE UNKNOWN
     Route: 041
     Dates: start: 201410, end: 201605

REACTIONS (1)
  - Pseudocirrhosis [Fatal]

NARRATIVE: CASE EVENT DATE: 201605
